FAERS Safety Report 10351354 (Version 1)
Quarter: 2014Q3

REPORT INFORMATION
  Report Type: Spontaneous
  Country: DE (occurrence: DE)
  Receive Date: 20140730
  Receipt Date: 20140730
  Transmission Date: 20150326
  Serious: Yes (Death, Other)
  Sender: FDA-Public Use
  Company Number: PHHY2014DE090657

PATIENT
  Age: 73 Year
  Sex: Male

DRUGS (3)
  1. IPILIMUMAB [Suspect]
     Active Substance: IPILIMUMAB
     Indication: PROSTATE CANCER METASTATIC
  2. PREDNISOLONE. [Suspect]
     Active Substance: PREDNISOLONE
     Indication: HYPOPHYSITIS
     Dosage: 30 MG, UNK
  3. HYDROCORTISONE. [Suspect]
     Active Substance: HYDROCORTISONE
     Route: 042

REACTIONS (5)
  - Malignant neoplasm progression [Fatal]
  - Hypopituitarism [Unknown]
  - Prostate cancer metastatic [Fatal]
  - Adrenocortical insufficiency acute [Unknown]
  - Hyperglycaemia [Unknown]
